FAERS Safety Report 5416527-X (Version None)
Quarter: 2007Q3

REPORT INFORMATION
  Report Type: 
  Country: None (occurrence: None)
  Receive Date: 20070816
  Receipt Date: 20070808
  Transmission Date: 20080115
  Serious: Yes (Other)
  Sender: FDA-Public Use
  Company Number: US-BAYER-200712092BCC

PATIENT
  Age: 55 Year
  Sex: Female
  Weight: 88 kg

DRUGS (4)
  1. ALEVE [Suspect]
     Indication: ARTHRALGIA
     Dosage: TOTAL DAILY DOSE: 440 MG  UNIT DOSE: 220 MG
     Route: 048
     Dates: start: 20070405, end: 20070405
  2. NORVASC [Concomitant]
     Route: 048
     Dates: start: 19980101
  3. NEXIUM [Concomitant]
     Route: 048
     Dates: start: 20010101
  4. GENERIC BRAND OF ASPIRIN [Concomitant]

REACTIONS (6)
  - ANAPHYLACTIC SHOCK [None]
  - DIZZINESS [None]
  - GENERALISED ERYTHEMA [None]
  - LOSS OF CONSCIOUSNESS [None]
  - PRURITUS GENERALISED [None]
  - VAGINAL SWELLING [None]
